FAERS Safety Report 7018873-5 (Version None)
Quarter: 2010Q3

REPORT INFORMATION
  Report Type: 
  Country: None (occurrence: None)
  Receive Date: 20100928
  Receipt Date: 20100917
  Transmission Date: 20110219
  Serious: Yes (Other)
  Sender: FDA-Public Use
  Company Number: US-PFIZER INC-2010119001

PATIENT
  Sex: Male
  Weight: 74.83 kg

DRUGS (6)
  1. LYRICA [Suspect]
     Indication: NERVE INJURY
     Dosage: 200 MG, 2X/DAY
     Route: 048
     Dates: start: 20100101, end: 20100914
  2. LYRICA [Suspect]
     Indication: PAIN
  3. LYRICA [Suspect]
     Indication: SURGERY
  4. LYRICA [Suspect]
     Indication: SPINAL FUSION SURGERY
  5. PERCOCET [Concomitant]
     Dosage: 10 MG, 4X/DAY
  6. OXYCONTIN [Concomitant]
     Dosage: 10 MG, DAILY

REACTIONS (14)
  - ARTHRALGIA [None]
  - DIZZINESS [None]
  - EYE IRRITATION [None]
  - INSOMNIA [None]
  - MALAISE [None]
  - MUSCLE SPASMS [None]
  - MYOCARDIAL INFARCTION [None]
  - NAUSEA [None]
  - PAIN IN EXTREMITY [None]
  - PALPITATIONS [None]
  - TREMOR [None]
  - VISUAL ACUITY REDUCED [None]
  - VOMITING [None]
  - WEIGHT DECREASED [None]
